FAERS Safety Report 22204033 (Version 1)
Quarter: 2023Q2

REPORT INFORMATION
  Report Type: Report from Study
  Country: CA (occurrence: CA)
  Receive Date: 20230412
  Receipt Date: 20230412
  Transmission Date: 20230722
  Serious: Yes (Other)
  Sender: FDA-Public Use
  Company Number: CA-GILEAD-2022-0611264

PATIENT
  Sex: Female

DRUGS (10)
  1. SACITUZUMAB GOVITECAN-HZIY [Suspect]
     Active Substance: SACITUZUMAB GOVITECAN-HZIY
     Indication: Triple negative breast cancer
     Dosage: 660 MG
     Route: 042
     Dates: start: 20221219, end: 20221227
  2. SACITUZUMAB GOVITECAN-HZIY [Suspect]
     Active Substance: SACITUZUMAB GOVITECAN-HZIY
     Dosage: 660 MG
     Route: 042
     Dates: start: 20230124, end: 20230203
  3. TAXOL [Concomitant]
     Active Substance: PACLITAXEL
  4. ADRIAMYCIN [Concomitant]
     Active Substance: DOXORUBICIN HYDROCHLORIDE
  5. CYTOXAN [Concomitant]
     Active Substance: CYCLOPHOSPHAMIDE
  6. CAPECITABINE [Concomitant]
     Active Substance: CAPECITABINE
  7. CARBOPLATIN\GEMCITABINE [Concomitant]
     Active Substance: CARBOPLATIN\GEMCITABINE
  8. CARBOPLATIN [Concomitant]
     Active Substance: CARBOPLATIN
  9. KISQALI [Concomitant]
     Active Substance: RIBOCICLIB
  10. LETROZOLE [Concomitant]
     Active Substance: LETROZOLE

REACTIONS (2)
  - Disease progression [Unknown]
  - Neutropenia [Unknown]
